FAERS Safety Report 7671304-4 (Version None)
Quarter: 2011Q3

REPORT INFORMATION
  Report Type: 
  Country: None (occurrence: None)
  Receive Date: 20110809
  Receipt Date: 20110808
  Transmission Date: 20111222
  Serious: Yes (Death)
  Sender: FDA-Public Use
  Company Number: IT-SANOFI-AVENTIS-2011SA050302

PATIENT
  Age: 33 Year
  Sex: Female

DRUGS (2)
  1. GEMCITABINE [Suspect]
     Indication: ANGIOSARCOMA
     Route: 042
     Dates: start: 20110801, end: 20110801
  2. TAXOTERE [Suspect]
     Indication: ANGIOSARCOMA
     Route: 042
     Dates: start: 20110801, end: 20110801

REACTIONS (2)
  - DEATH [None]
  - ABDOMINAL PAIN [None]
